FAERS Safety Report 21585505 (Version 1)
Quarter: 2022Q4

REPORT INFORMATION
  Report Type: Spontaneous
  Country: BE (occurrence: BE)
  Receive Date: 20221111
  Receipt Date: 20221111
  Transmission Date: 20230112
  Serious: Yes (Life-Threatening, Hospitalization, Other)
  Sender: FDA-Public Use
  Company Number: None

PATIENT
  Sex: Male
  Weight: 74 kg

DRUGS (2)
  1. ELIQUIS [Interacting]
     Active Substance: APIXABAN
     Indication: Product used for unknown indication
     Route: 048
  2. ITRACONAZOLE [Interacting]
     Active Substance: ITRACONAZOLE
     Indication: Onychomycosis
     Route: 065

REACTIONS (3)
  - Arterial haemorrhage [Recovering/Resolving]
  - Drug interaction [Recovering/Resolving]
  - Hypovolaemic shock [Recovering/Resolving]

NARRATIVE: CASE EVENT DATE: 20221019
